FAERS Safety Report 4854844-2 (Version None)
Quarter: 2005Q4

REPORT INFORMATION
  Report Type: 
  Country: None (occurrence: None)
  Receive Date: 20051213
  Receipt Date: 20051130
  Transmission Date: 20060501
  Serious: Yes (Other)
  Sender: FDA-Public Use
  Company Number: 2005165082

PATIENT
  Age: 53 Year
  Sex: Male

DRUGS (4)
  1. NORVASC [Suspect]
     Indication: HYPERTENSION
     Dosage: 5 MG ORAL
     Route: 048
     Dates: start: 20041201, end: 20051101
  2. ASPIRIN [Suspect]
     Indication: ANGINA PECTORIS
     Dosage: 100 MG ORAL
     Route: 048
     Dates: start: 20041201, end: 20051101
  3. COVERSYL (PERINDOPRIL) [Suspect]
     Indication: HYPERTENSION
     Dosage: 4 MG ORAL
     Route: 048
     Dates: start: 20041201, end: 20051101
  4. CARVEDILOL [Suspect]
     Indication: HYPERTENSION
     Dosage: 10 MG, ORAL
     Route: 048
     Dates: start: 20041201, end: 20051101

REACTIONS (6)
  - EOSINOPHIL COUNT INCREASED [None]
  - HYPERTROPHY [None]
  - OESOPHAGEAL DISORDER [None]
  - PERIPHERAL VASCULAR DISORDER [None]
  - PERITONEAL DISORDER [None]
  - PLEURAL EFFUSION [None]
